FAERS Safety Report 21596124 (Version 3)
Quarter: 2022Q4

REPORT INFORMATION
  Report Type: Spontaneous
  Country: JP (occurrence: JP)
  Receive Date: 20221115
  Receipt Date: 20221214
  Transmission Date: 20230112
  Serious: Yes (Life-Threatening, Hospitalization)
  Sender: FDA-Public Use
  Company Number: JP-LEO Pharma-346722

PATIENT
  Sex: Male

DRUGS (1)
  1. BETAMETHASONE\CALCIPOTRIENE [Suspect]
     Active Substance: BETAMETHASONE\CALCIPOTRIENE
     Indication: Psoriasis
     Dosage: UNKNOWN
     Route: 003

REACTIONS (1)
  - COVID-19 pneumonia [Not Recovered/Not Resolved]
